FAERS Safety Report 5843450-9 (Version None)
Quarter: 2008Q3

REPORT INFORMATION
  Report Type: 
  Country: None (occurrence: None)
  Receive Date: 20080813
  Receipt Date: 20080805
  Transmission Date: 20090109
  Serious: Yes (Other)
  Sender: FDA-Public Use
  Company Number: JP-ASTRAZENECA-2008SE01574

PATIENT
  Sex: Male

DRUGS (12)
  1. BLOPRESS [Suspect]
     Indication: HYPERTENSION
     Route: 048
     Dates: start: 20040715, end: 20050302
  2. BLOPRESS [Suspect]
     Route: 048
     Dates: start: 20050303, end: 20061108
  3. BLOPRESS [Suspect]
     Route: 048
     Dates: start: 20061109, end: 20070307
  4. TRICOR [Suspect]
     Indication: HYPERTRIGLYCERIDAEMIA
     Route: 048
     Dates: start: 20050602, end: 20050629
  5. TRICOR [Suspect]
     Route: 048
     Dates: start: 20050630, end: 20070131
  6. TRICOR [Suspect]
     Route: 048
     Dates: start: 20070201, end: 20080402
  7. TAKEPRON [Concomitant]
     Indication: REFLUX OESOPHAGITIS
     Route: 048
     Dates: start: 20060427, end: 20060601
  8. FENOFIBRATE [Concomitant]
     Indication: HYPERTRIGLYCERIDAEMIA
     Route: 048
     Dates: start: 20040909, end: 20050601
  9. URALYT [Concomitant]
     Indication: HYPERURICAEMIA
     Route: 048
     Dates: start: 20040715, end: 20061012
  10. TEGRETOL [Concomitant]
     Indication: TRIGEMINAL NEURALGIA
     Route: 048
     Dates: start: 20050303, end: 20050811
  11. BEZATOL SR [Concomitant]
     Route: 048
     Dates: start: 20040415, end: 20040908
  12. FAMOTIDINE [Concomitant]

REACTIONS (1)
  - INTERSTITIAL LUNG DISEASE [None]
